FAERS Safety Report 7024477-0 (Version None)
Quarter: 2010Q4

REPORT INFORMATION
  Report Type: 
  Country: None (occurrence: None)
  Receive Date: 20101001
  Receipt Date: 20100929
  Transmission Date: 20110411
  Serious: Yes (Hospitalization)
  Sender: FDA-Public Use
  Company Number: A0810448A

PATIENT
  Age: 41 Year
  Sex: Female
  Weight: 190.5 kg

DRUGS (7)
  1. AVANDIA [Suspect]
     Dosage: 8MG PER DAY
     Route: 048
     Dates: end: 20060501
  2. ALTACE [Concomitant]
  3. ATENOLOL [Concomitant]
  4. NOVOLOG [Concomitant]
  5. DEPO-PROVERA [Concomitant]
  6. HUMULIN R [Concomitant]
  7. LASIX [Concomitant]

REACTIONS (4)
  - CEREBROVASCULAR ACCIDENT [None]
  - HYPERTENSION [None]
  - PULMONARY HYPERTENSION [None]
  - TRANSIENT ISCHAEMIC ATTACK [None]
